FAERS Safety Report 21730042 (Version 2)
Quarter: 2022Q4

REPORT INFORMATION
  Report Type: Spontaneous
  Country: JP (occurrence: JP)
  Receive Date: 20221214
  Receipt Date: 20221227
  Transmission Date: 20230113
  Serious: Yes (Disabling, Other)
  Sender: FDA-Public Use
  Company Number: JP-002147023-NVSJ2022JP101696

PATIENT
  Age: 77 Year
  Sex: Female

DRUGS (3)
  1. ENTRESTO [Suspect]
     Active Substance: SACUBITRIL\VALSARTAN
     Indication: Hypertension
     Dosage: 200 MG
     Route: 048
     Dates: start: 20221110, end: 20221114
  2. HERBALS [Suspect]
     Active Substance: HERBALS
     Indication: Product used for unknown indication
     Dosage: 6000 MG
     Route: 048
     Dates: start: 20221110
  3. AMLODIPINE [Concomitant]
     Active Substance: AMLODIPINE BESYLATE
     Indication: Hypertension
     Dosage: 10 MG
     Route: 048

REACTIONS (4)
  - Aphasia [Not Recovered/Not Resolved]
  - Cerebral infarction [Unknown]
  - Pseudoaldosteronism [Unknown]
  - Blood potassium decreased [Not Recovered/Not Resolved]

NARRATIVE: CASE EVENT DATE: 20221114
